FAERS Safety Report 17307861 (Version 1)
Quarter: 2020Q1

REPORT INFORMATION
  Report Type: Spontaneous
  Country: KR (occurrence: KR)
  Receive Date: 20200123
  Receipt Date: 20200123
  Transmission Date: 20200409
  Serious: Yes (Hospitalization, Other)
  Sender: FDA-Public Use
  Company Number: KR-ACCORD-170525

PATIENT
  Age: 20 Year
  Sex: Female

DRUGS (1)
  1. MYCOPHENOLIC ACID. [Suspect]
     Active Substance: MYCOPHENOLIC ACID

REACTIONS (4)
  - Suicide attempt [Unknown]
  - Ventricular tachycardia [Recovered/Resolved]
  - Ventricular extrasystoles [Recovered/Resolved]
  - Hypotension [Recovered/Resolved]
